FAERS Safety Report 21342081 (Version 1)
Quarter: 2022Q3

REPORT INFORMATION
  Report Type: Spontaneous
  Country: US (occurrence: None)
  Receive Date: 20220915
  Receipt Date: 20220915
  Transmission Date: 20221026
  Serious: Yes (Other)
  Sender: FDA-Public Use
  Company Number: None

PATIENT
  Age: 64 Year
  Sex: Female
  Weight: 63 kg

DRUGS (5)
  1. VOLTAREN ARTHRITIS PAIN [Suspect]
     Active Substance: DICLOFENAC SODIUM
     Indication: Pain in extremity
     Dosage: OTHER QUANTITY : 2 GRAMS;?FREQUENCY : TWICE A DAY;?
     Route: 061
     Dates: start: 20220416, end: 20220416
  2. VOLTAREN ARTHRITIS PAIN [Suspect]
     Active Substance: DICLOFENAC SODIUM
     Indication: Musculoskeletal stiffness
  3. Vivelle dot .0375 [Concomitant]
  4. VITAMIN D3 [Concomitant]
     Active Substance: CHOLECALCIFEROL
  5. 2000 iu CoQ10, 300mg [Concomitant]

REACTIONS (2)
  - Tinnitus [None]
  - Middle insomnia [None]

NARRATIVE: CASE EVENT DATE: 20220416
